FAERS Safety Report 6024249-X (Version None)
Quarter: 2008Q4

REPORT INFORMATION
  Report Type: 
  Country: None (occurrence: None)
  Receive Date: 20081231
  Receipt Date: 20081215
  Transmission Date: 20090506
  Serious: Yes (Hospitalization)
  Sender: FDA-Public Use
  Company Number: US-ROCHE-603086

PATIENT
  Sex: Male

DRUGS (6)
  1. PEGASYS [Suspect]
     Route: 065
     Dates: start: 20070228
  2. COPEGUS [Suspect]
     Route: 065
     Dates: start: 20070228
  3. UNSPECIFIED DRUG [Suspect]
     Dosage: DRUG REPORTED AS ^PILLS^
     Route: 065
  4. LEXAPRO [Concomitant]
     Indication: DEPRESSION
  5. BUSPAR [Concomitant]
     Indication: ANXIETY
  6. XANAX [Concomitant]
     Indication: ANXIETY

REACTIONS (5)
  - BODY TEMPERATURE INCREASED [None]
  - LEUKAEMIA [None]
  - MASS [None]
  - PAIN [None]
  - WHITE BLOOD CELL COUNT INCREASED [None]
